FAERS Safety Report 9291153 (Version 1)
Quarter: 2013Q2

REPORT INFORMATION
  Report Type: Spontaneous
  Country: US (occurrence: US)
  Receive Date: 20130515
  Receipt Date: 20130515
  Transmission Date: 20140414
  Serious: Yes (Other)
  Sender: FDA-Public Use
  Company Number: US-AMGEN-USASP2013033740

PATIENT
  Age: 47 Year
  Sex: Female

DRUGS (2)
  1. ENBREL [Suspect]
     Indication: PSORIATIC ARTHROPATHY
     Dosage: 50 MG, QWK
     Dates: start: 20120830, end: 201304
  2. METHOTREXATE [Concomitant]
     Dosage: 7.5 MG, QWK (WEEKLY )
     Route: 048

REACTIONS (3)
  - Thyroid mass [Recovered/Resolved]
  - Hypothyroidism [Not Recovered/Not Resolved]
  - Visual acuity reduced [Not Recovered/Not Resolved]
